FAERS Safety Report 20053890 (Version 1)
Quarter: 2021Q4

REPORT INFORMATION
  Report Type: Spontaneous
  Country: CN (occurrence: CN)
  Receive Date: 20211110
  Receipt Date: 20211110
  Transmission Date: 20220303
  Serious: Yes (Hospitalization, Other)
  Sender: FDA-Public Use
  Company Number: CN-PFIZER INC-202101488621

PATIENT
  Age: 8 Year
  Sex: Female
  Weight: 40 kg

DRUGS (4)
  1. CYTARABINE [Suspect]
     Active Substance: CYTARABINE
     Indication: Acute lymphocytic leukaemia
     Dosage: 2.4G, 2X/DAY
     Route: 041
     Dates: start: 20210916, end: 20210918
  2. PEGASPARGASE [Suspect]
     Active Substance: PEGASPARGASE
     Indication: Acute lymphocytic leukaemia
     Dosage: 2400 IU, SINGLE
     Route: 030
     Dates: start: 20210918, end: 20210918
  3. VINDESINE SULFATE [Suspect]
     Active Substance: VINDESINE SULFATE
     Indication: Acute lymphocytic leukaemia
     Dosage: 3.6MG ONCE EVERY 7 DAYS
     Route: 042
     Dates: start: 20210916, end: 20211002
  4. SODIUM CHLORIDE [Concomitant]
     Active Substance: SODIUM CHLORIDE
     Indication: Vehicle solution use
     Dosage: 250 ML, 2X/DAY
     Route: 042
     Dates: start: 20210916, end: 20210918

REACTIONS (3)
  - Myelosuppression [Recovering/Resolving]
  - Pyrexia [Recovering/Resolving]
  - Pallor [Unknown]

NARRATIVE: CASE EVENT DATE: 20210925
